FAERS Safety Report 26204165 (Version 1)
Quarter: 2025Q4

REPORT INFORMATION
  Report Type: Spontaneous
  Country: CA (occurrence: CA)
  Receive Date: 20251226
  Receipt Date: 20251226
  Transmission Date: 20260118
  Serious: Yes (Hospitalization)
  Sender: FRESENIUS KABI
  Company Number: CA-FreseniusKabi-FK202517357

PATIENT
  Age: 78 Year
  Sex: Female
  Weight: 43 kg

DRUGS (1)
  1. HEPARIN SODIUM [Suspect]
     Active Substance: HEPARIN SODIUM
     Indication: Mitral valve prolapse
     Dosage: FOA: SOLUTION INTRAVENOUS
     Route: 041

REACTIONS (8)
  - Coronary artery embolism [Recovering/Resolving]
  - Embolic stroke [Recovering/Resolving]
  - Haemorrhagic transformation stroke [Recovering/Resolving]
  - Ischaemic stroke [Recovering/Resolving]
  - Platelet count decreased [Recovering/Resolving]
  - Speech disorder [Recovering/Resolving]
  - Swelling [Recovering/Resolving]
  - Thrombosis [Recovering/Resolving]
